FAERS Safety Report 25825586 (Version 3)
Quarter: 2025Q4

REPORT INFORMATION
  Report Type: Spontaneous
  Country: CN (occurrence: CN)
  Receive Date: 20250919
  Receipt Date: 20251001
  Transmission Date: 20260118
  Serious: Yes (Life-Threatening, Hospitalization, Disabling)
  Sender: IPSEN BIOPHARMACEUTICALS, INC.
  Company Number: CN-IPSEN Group, Research and Development-2025-23111

PATIENT
  Age: 36 Year
  Sex: Female

DRUGS (2)
  1. BOTULINUM TOXIN TYPE A [Suspect]
     Active Substance: BOTULINUM TOXIN TYPE A
     Indication: Product used for unknown indication
     Route: 030
  2. BOTULINUM TOXIN TYPE A [Suspect]
     Active Substance: BOTULINUM TOXIN TYPE A
     Dosage: PATIENT RECEIVED FACIAL INJECTION OF 85U OF TYPE A BOTULINUM TOXIN. THE INJECTION SITES INCLUDED THE FRONTALIS, CORRUGATOR SUPERCILII, DEPRESSOR SUPERCILII, ORBICULARIS OCULI, MASSETER, AND LEVATOR LABII SUPERIORIS ALAEQUE NASI MUSCLES.
     Route: 030

REACTIONS (15)
  - Feeding disorder [Recovering/Resolving]
  - Dizziness postural [Recovering/Resolving]
  - Asthenia [Recovering/Resolving]
  - Eyelid ptosis [Recovering/Resolving]
  - Hyporeflexia [Recovering/Resolving]
  - Toxicity to various agents [Recovering/Resolving]
  - Lethargy [Recovering/Resolving]
  - Eye movement disorder [Recovering/Resolving]
  - Vision blurred [Recovering/Resolving]
  - Diplopia [Recovering/Resolving]
  - Dizziness [Recovering/Resolving]
  - Choking [Recovering/Resolving]
  - Cough [Recovering/Resolving]
  - Sputum retention [Recovering/Resolving]
  - Muscular weakness [Recovering/Resolving]

NARRATIVE: CASE EVENT DATE: 20241001
